FAERS Safety Report 6874032-8 (Version None)
Quarter: 2010Q3

REPORT INFORMATION
  Report Type: 
  Country: None (occurrence: None)
  Receive Date: 20100723
  Receipt Date: 20100720
  Transmission Date: 20110219
  Serious: Yes (Other)
  Sender: FDA-Public Use
  Company Number: 2010SP035062

PATIENT
  Age: 68 Year
  Sex: Male
  Weight: 75 kg

DRUGS (3)
  1. BETAMETHASONE SODIUM PHOSPHATE [Suspect]
     Indication: TENDONITIS
     Dosage: 1 DF; ONCE; IA
     Route: 014
     Dates: start: 20090101, end: 20090101
  2. BETAMETHASONE SODIUM PHOSPHATE [Suspect]
     Indication: TENDONITIS
     Dosage: 1 DF; ONCE; IA
     Route: 014
     Dates: start: 20100326, end: 20100326
  3. KARDEGIC [Concomitant]

REACTIONS (14)
  - AMAUROSIS [None]
  - DYSPNOEA [None]
  - FATIGUE [None]
  - FORMICATION [None]
  - GENERALISED ERYTHEMA [None]
  - HYPERHIDROSIS [None]
  - HYPERSENSITIVITY [None]
  - LOSS OF CONSCIOUSNESS [None]
  - MALAISE [None]
  - NAUSEA [None]
  - PRURITUS [None]
  - RASH GENERALISED [None]
  - URTICARIA [None]
  - VERTIGO [None]
